FAERS Safety Report 19962007 (Version 2)
Quarter: 2021Q4

REPORT INFORMATION
  Report Type: Spontaneous
  Country: AT (occurrence: AT)
  Receive Date: 20211018
  Receipt Date: 20211106
  Transmission Date: 20220303
  Serious: Yes (Other)
  Sender: FDA-Public Use
  Company Number: AT-AMGEN-AUTSP2021157554

PATIENT
  Age: 57 Year
  Sex: Female

DRUGS (7)
  1. FILGRASTIM [Suspect]
     Active Substance: FILGRASTIM
     Indication: Product used for unknown indication
     Dosage: UNK
     Route: 065
  2. RITUXIMAB [Concomitant]
     Active Substance: RITUXIMAB
  3. DEXAMETHASONE [Concomitant]
     Active Substance: DEXAMETHASONE
  4. CYTARABINE [Concomitant]
     Active Substance: CYTARABINE
  5. CISPLATIN [Concomitant]
     Active Substance: CISPLATIN
  6. IBRUTINIB [Concomitant]
     Active Substance: IBRUTINIB
  7. VENETOCLAX [Concomitant]
     Active Substance: VENETOCLAX

REACTIONS (2)
  - B-cell aplasia [Unknown]
  - Hypogammaglobulinaemia [Unknown]
